FAERS Safety Report 10387813 (Version 1)
Quarter: 2014Q3

REPORT INFORMATION
  Report Type: Report from Study
  Country: DE (occurrence: PL)
  Receive Date: 20140815
  Receipt Date: 20140815
  Transmission Date: 20150326
  Serious: Yes (Hospitalization, Other)
  Sender: FDA-Public Use
  Company Number: DE-ACTELION-A-US2014-103738

PATIENT
  Age: 1 Day
  Sex: Male

DRUGS (4)
  1. SILDENAFIL [Suspect]
     Active Substance: SILDENAFIL
     Indication: PULMONARY ARTERIAL HYPERTENSION
     Route: 064
  2. VENTAVIS [Suspect]
     Active Substance: ILOPROST
     Indication: MATERNAL EXPOSURE DURING PREGNANCY
     Dosage: UNK
     Route: 064
     Dates: start: 20140226, end: 20140318
  3. DEXAVEN [Concomitant]
     Active Substance: DEXAMETHASONE
     Dosage: UNK
     Dates: start: 20140311, end: 20140312
  4. CLEXANE [Concomitant]
     Active Substance: ENOXAPARIN SODIUM
     Route: 064

REACTIONS (10)
  - Premature baby [Recovered/Resolved]
  - Neonatal respiratory distress syndrome [Recovered/Resolved]
  - Low birth weight baby [Recovered/Resolved]
  - Neonatal respiratory failure [Recovered/Resolved]
  - Contusion [Recovered/Resolved]
  - Apnoea neonatal [Recovered/Resolved]
  - Anaemia neonatal [Recovered/Resolved]
  - Hydrocele [Recovered/Resolved]
  - Jaundice neonatal [Recovered/Resolved]
  - Neonatal cardiac failure [Recovered/Resolved]

NARRATIVE: CASE EVENT DATE: 20140318
